FAERS Safety Report 20539589 (Version 2)
Quarter: 2022Q2

REPORT INFORMATION
  Report Type: Report from Study
  Country: CA (occurrence: CA)
  Receive Date: 20220302
  Receipt Date: 20220422
  Transmission Date: 20220721
  Serious: Yes (Life-Threatening)
  Sender: FDA-Public Use
  Company Number: CA-JNJFOC-20211060609

PATIENT
  Age: 55 Year
  Sex: Female

DRUGS (1)
  1. REMICADE [Suspect]
     Active Substance: INFLIXIMAB
     Indication: Crohn^s disease
     Route: 042

REACTIONS (9)
  - Infusion related reaction [Unknown]
  - Vision blurred [Recovered/Resolved]
  - Muscle tightness [Recovering/Resolving]
  - Tremor [Recovered/Resolved]
  - Panic attack [Recovering/Resolving]
  - Hypoaesthesia [Not Recovered/Not Resolved]
  - Excessive eye blinking [Unknown]
  - Pain in extremity [Recovered/Resolved]
  - Incorrect dose administered [Unknown]
